FAERS Safety Report 9960030 (Version 1)
Quarter: 2014Q1

REPORT INFORMATION
  Report Type: Report from Study
  Country: US (occurrence: US)
  Receive Date: 20140305
  Receipt Date: 20140305
  Transmission Date: 20141002
  Serious: No
  Sender: FDA-Public Use
  Company Number: US-ABBVIE-13P-163-1103138-00

PATIENT
  Age: 45 Year
  Sex: Female
  Weight: 64.01 kg

DRUGS (7)
  1. HUMIRA [Suspect]
     Indication: RHEUMATOID ARTHRITIS
     Dates: start: 201209, end: 201304
  2. METHOTREXATE [Concomitant]
     Indication: RHEUMATOID ARTHRITIS
  3. CELEBREX [Concomitant]
     Indication: RHEUMATOID ARTHRITIS
  4. VITAMIN D [Concomitant]
     Indication: HYPOVITAMINOSIS
  5. CALCIUM [Concomitant]
     Indication: MINERAL SUPPLEMENTATION
  6. MTX SUPPORT [Concomitant]
     Indication: SUPPLEMENTATION THERAPY
  7. TRAMADOL [Concomitant]
     Indication: PAIN

REACTIONS (2)
  - Influenza like illness [Recovered/Resolved]
  - Drug ineffective [Not Recovered/Not Resolved]
